FAERS Safety Report 16206188 (Version 3)
Quarter: 2019Q3

REPORT INFORMATION
  Report Type: Spontaneous
  Country: CA (occurrence: CA)
  Receive Date: 20190417
  Receipt Date: 20190921
  Transmission Date: 20191004
  Serious: Yes (Life-Threatening, Other)
  Sender: FDA-Public Use
  Company Number: CA-AUROBINDO-AUR-APL-2019-019732

PATIENT
  Age: 74 Year
  Sex: Male

DRUGS (2)
  1. ASPIRIN. [Interacting]
     Active Substance: ASPIRIN
     Indication: CORONARY ARTERIAL STENT INSERTION
     Dosage: UNK
     Route: 065
  2. CLOPIDOGREL [Suspect]
     Active Substance: CLOPIDOGREL BISULFATE
     Indication: CORONARY ARTERIAL STENT INSERTION
     Dosage: UNK
     Route: 065

REACTIONS (5)
  - Subarachnoid haemorrhage [Unknown]
  - Subdural haemorrhage [Unknown]
  - Labelled drug-drug interaction medication error [Unknown]
  - Craniocerebral injury [Unknown]
  - Product administration error [Unknown]
